FAERS Safety Report 5419672-8 (Version None)
Quarter: 2007Q3

REPORT INFORMATION
  Report Type: 
  Country: None (occurrence: None)
  Receive Date: 20070718
  Receipt Date: 20060823
  Transmission Date: 20080115
  Serious: Yes (Other)
  Sender: FDA-Public Use
  Company Number: 2006106841

PATIENT
  Sex: Male

DRUGS (3)
  1. CELEBREX [Suspect]
     Indication: OSTEOARTHRITIS
     Dosage: (200 MG)
     Dates: start: 20000202
  2. VIOXX [Suspect]
     Indication: OSTEOARTHRITIS
     Dosage: 25 MG (25 MG,1 IN 1 D)
     Dates: start: 20010102, end: 20040326
  3. NEXIUM [Suspect]

REACTIONS (2)
  - CORONARY ARTERY STENOSIS [None]
  - RENAL FAILURE [None]
